FAERS Safety Report 9226150 (Version 1)
Quarter: 2013Q2

REPORT INFORMATION
  Report Type: Spontaneous
  Country: US (occurrence: US)
  Receive Date: 20130411
  Receipt Date: 20130411
  Transmission Date: 20140414
  Serious: No
  Sender: FDA-Public Use
  Company Number: US-PFIZER INC-2013112748

PATIENT
  Age: 49 Year
  Sex: Female
  Weight: 71.66 kg

DRUGS (4)
  1. ZYVOX [Suspect]
     Indication: CELLULITIS
     Dosage: 600 MG, 2X/DAY
     Route: 048
     Dates: start: 20130404
  2. NORVASC [Concomitant]
     Indication: HYPERTENSION
     Dosage: UNK
  3. METOPROLOL [Concomitant]
     Indication: HYPERTENSION
     Dosage: UNK
  4. KEPPRA [Concomitant]
     Indication: CONVULSION
     Dosage: UNK

REACTIONS (6)
  - Stomatitis [Not Recovered/Not Resolved]
  - Oral mucosal erythema [Not Recovered/Not Resolved]
  - Tongue discolouration [Not Recovered/Not Resolved]
  - Dry mouth [Not Recovered/Not Resolved]
  - Lip dry [Not Recovered/Not Resolved]
  - Local swelling [Not Recovered/Not Resolved]
